FAERS Safety Report 9531785 (Version 1)
Quarter: 2013Q3

REPORT INFORMATION
  Report Type: Spontaneous
  Country: US (occurrence: US)
  Receive Date: 20130918
  Receipt Date: 20130918
  Transmission Date: 20140515
  Serious: No
  Sender: FDA-Public Use
  Company Number: US-PFIZER INC-2013265715

PATIENT
  Sex: Male

DRUGS (5)
  1. ARTHROTEC [Suspect]
     Dosage: UNK
  2. CELEBREX [Suspect]
     Dosage: UNK
  3. ACETAMINOPHEN W/CODEINE [Suspect]
     Dosage: UNK
  4. OIL [Suspect]
     Dosage: UNK
  5. TRAMADOL [Suspect]
     Dosage: UNK

REACTIONS (2)
  - Drug hypersensitivity [Unknown]
  - Nausea [Unknown]
